FAERS Safety Report 7811504-3 (Version None)
Quarter: 2011Q4

REPORT INFORMATION
  Report Type: 
  Country: None (occurrence: None)
  Receive Date: 20111013
  Receipt Date: 20111013
  Transmission Date: 20120403
  Serious: Yes (Other)
  Sender: FDA-Public Use
  Company Number: None

PATIENT
  Sex: Male

DRUGS (3)
  1. ASPIRIN [Concomitant]
  2. AVELOX [Suspect]
     Indication: NASAL DISORDER
     Dosage: ONE TABLET 400 MG
     Route: 048
     Dates: start: 20110726, end: 20110815
  3. METOPROLOL TARTRATE [Concomitant]

REACTIONS (3)
  - LENS DISORDER [None]
  - LACRIMAL DISORDER [None]
  - EYE DISORDER [None]
